FAERS Safety Report 25951652 (Version 2)
Quarter: 2025Q4

REPORT INFORMATION
  Report Type: Spontaneous
  Country: JP (occurrence: JP)
  Receive Date: 20251023
  Receipt Date: 20251217
  Transmission Date: 20260117
  Serious: Yes (Other)
  Sender: JOHNSON AND JOHNSON
  Company Number: JP-JNJFOC-20251029194

PATIENT

DRUGS (5)
  1. RYBREVANT [Suspect]
     Active Substance: AMIVANTAMAB-VMJW
     Indication: Product used for unknown indication
     Dosage: DOSE UNKNOWN
     Route: 041
  2. RYBREVANT [Suspect]
     Active Substance: AMIVANTAMAB-VMJW
     Dosage: DOSE UNKNOWN, DOSE DECREASED
     Route: 041
  3. RYBREVANT [Suspect]
     Active Substance: AMIVANTAMAB-VMJW
     Dosage: DOSE UNKNOWN
     Route: 041
  4. LAZCLUZE [Suspect]
     Active Substance: LAZERTINIB
     Indication: Product used for unknown indication
     Dosage: DOSE UNKNOWN
     Route: 048
  5. LAZCLUZE [Suspect]
     Active Substance: LAZERTINIB
     Dosage: DOSE UNKNOWN
     Route: 048

REACTIONS (2)
  - Infusion related reaction [Unknown]
  - Hypoalbuminaemia [Unknown]
